FAERS Safety Report 13400188 (Version 1)
Quarter: 2017Q2

REPORT INFORMATION
  Report Type: Spontaneous
  Country: US (occurrence: US)
  Receive Date: 20170404
  Receipt Date: 20170404
  Transmission Date: 20170830
  Serious: No
  Sender: FDA-Public Use
  Company Number: US-PFIZER INC-2017143008

PATIENT
  Age: 57 Year
  Sex: Female

DRUGS (1)
  1. IBRANCE [Suspect]
     Active Substance: PALBOCICLIB
     Dosage: 125 MG, CYCLIC (TAKE 1 CAPSULE BY MOUTH DAILY FOR 21 DAYS AND 7 DAYS OFF)
     Route: 048
     Dates: start: 201702

REACTIONS (4)
  - Fatigue [Recovering/Resolving]
  - Viral upper respiratory tract infection [Recovering/Resolving]
  - Dry mouth [Recovering/Resolving]
  - Disorientation [Recovering/Resolving]
